FAERS Safety Report 13162430 (Version 3)
Quarter: 2017Q2

REPORT INFORMATION
  Report Type: Report from Study
  Country: JP (occurrence: JP)
  Receive Date: 20170130
  Receipt Date: 20170519
  Transmission Date: 20170830
  Serious: Yes (Death)
  Sender: FDA-Public Use
  Company Number: JP-B.I. PHARMACEUTICALS,INC./RIDGEFIELD-2017-NB-000423

PATIENT
  Age: 59 Year
  Sex: Male
  Weight: 53.9 kg

DRUGS (1)
  1. PRIZBIND [Suspect]
     Active Substance: IDARUCIZUMAB
     Indication: PROCOAGULANT THERAPY
     Route: 042
     Dates: start: 20170125, end: 20170125

REACTIONS (1)
  - Pyelonephritis [Fatal]
